FAERS Safety Report 23572368 (Version 2)
Quarter: 2024Q2

REPORT INFORMATION
  Report Type: Spontaneous
  Country: US (occurrence: US)
  Receive Date: 20240227
  Receipt Date: 20240528
  Transmission Date: 20240716
  Serious: No
  Sender: FDA-Public Use
  Company Number: US-AVADEL CNS PHARMACEUTICALS, LLC-2024AVA00107

PATIENT
  Age: 51 Year
  Sex: Male

DRUGS (10)
  1. LUMRYZ [Suspect]
     Active Substance: SODIUM OXYBATE
     Indication: Narcolepsy
     Dosage: 7.5 GRAMS ONCE NIGHTLY
     Dates: start: 20231227
  2. PROZAC [Concomitant]
     Active Substance: FLUOXETINE HYDROCHLORIDE
  3. DEXEDRINE [Concomitant]
     Active Substance: DEXTROAMPHETAMINE SULFATE
  4. METFORMIN [Concomitant]
     Active Substance: METFORMIN HYDROCHLORIDE
  5. VITAMIN D NOS [Concomitant]
     Active Substance: CHOLECALCIFEROL\ERGOCALCIFEROL
  6. ATORVASTATIN [Concomitant]
     Active Substance: ATORVASTATIN
  7. LISINOPRIL [Concomitant]
     Active Substance: LISINOPRIL
  8. METOPROLOL [Concomitant]
     Active Substance: METOPROLOL
  9. TRULICITY [Concomitant]
     Active Substance: DULAGLUTIDE
  10. LANTUS [Concomitant]
     Active Substance: INSULIN GLARGINE

REACTIONS (2)
  - Initial insomnia [Not Recovered/Not Resolved]
  - Insomnia [Not Recovered/Not Resolved]

NARRATIVE: CASE EVENT DATE: 20231227
